FAERS Safety Report 15414438 (Version 1)
Quarter: 2018Q3

REPORT INFORMATION
  Report Type: Spontaneous
  Country: US (occurrence: US)
  Receive Date: 20180921
  Receipt Date: 20180921
  Transmission Date: 20181010
  Serious: No
  Sender: FDA-Public Use
  Company Number: US-NOVOPROD-580601

PATIENT
  Age: 76 Year
  Sex: Female

DRUGS (2)
  1. VICTOZA [Suspect]
     Active Substance: LIRAGLUTIDE
     Indication: TYPE 2 DIABETES MELLITUS
     Dosage: 1.8 MG, UNK
     Route: 058
     Dates: start: 20170620, end: 20171227
  2. LANTUS [Concomitant]
     Active Substance: INSULIN GLARGINE
     Indication: TYPE 2 DIABETES MELLITUS
     Dosage: 46 UNITS AT NIGHT

REACTIONS (7)
  - Flatulence [Recovered/Resolved]
  - Rash [Not Recovered/Not Resolved]
  - Acarodermatitis [Unknown]
  - Acne [Recovered/Resolved]
  - Abdominal distension [Recovered/Resolved]
  - Pruritus generalised [Not Recovered/Not Resolved]
  - Constipation [Recovered/Resolved]

NARRATIVE: CASE EVENT DATE: 201706
